FAERS Safety Report 6240704-1 (Version None)
Quarter: 2009Q2

REPORT INFORMATION
  Report Type: 
  Country: None (occurrence: None)
  Receive Date: 20090617
  Receipt Date: 20080122
  Transmission Date: 20091009
  Serious: No
  Sender: FDA-Public Use
  Company Number: 271656

PATIENT
  Age: 62 Year
  Sex: Female

DRUGS (3)
  1. LEVEMIR [Suspect]
     Indication: DIABETES MELLITUS
     Dosage: 20 IU, QD, SUBCUTANEOUS
     Route: 058
  2. NOVOLOG [Suspect]
     Indication: DIABETES MELLITUS
     Dosage: 15 IU, QD, SUBCUTANEOUS
     Route: 058
     Dates: start: 20060101
  3. METFORMIN [Concomitant]

REACTIONS (1)
  - WEIGHT INCREASED [None]
